FAERS Safety Report 9507465 (Version 1)
Quarter: 2013Q3

REPORT INFORMATION
  Report Type: Spontaneous
  Country: US (occurrence: None)
  Receive Date: 20130904
  Receipt Date: 20130904
  Transmission Date: 20140515
  Serious: Yes (Death, Life-Threatening, Hospitalization)
  Sender: FDA-Public Use
  Company Number: PC0000748

PATIENT
  Age: 64 Year
  Sex: Female
  Weight: 98.7 kg

DRUGS (13)
  1. AMMONIA N 13 [Suspect]
     Indication: CORONARY ARTERY DISEASE
     Route: 042
  2. ASPIRIN [Concomitant]
  3. LIPITOR [Concomitant]
  4. ROCALTROL [Concomitant]
  5. ZYRTEC [Concomitant]
  6. DILACOR XR [Concomitant]
  7. NEXIUM [Concomitant]
  8. LASIX [Concomitant]
  9. GLUCOTROL [Concomitant]
  10. APRESOLINE [Concomitant]
  11. NORMODYNE [Concomitant]
  12. XALATAN [Concomitant]
  13. RENVELA [Concomitant]

REACTIONS (1)
  - Death [None]
